FAERS Safety Report 7456518-0 (Version None)
Quarter: 2011Q2

REPORT INFORMATION
  Report Type: 
  Country: None (occurrence: None)
  Receive Date: 20110503
  Receipt Date: 20110428
  Transmission Date: 20111010
  Serious: Yes (Other)
  Sender: FDA-Public Use
  Company Number: FR-ROXANE LABORATORIES, INC.-2011-RO-00591RO

PATIENT
  Age: 57 Year
  Sex: Female
  Weight: 55 kg

DRUGS (3)
  1. ADALIMUMAB [Suspect]
     Indication: CROHN'S DISEASE
     Route: 058
  2. AZATHIOPRINE [Suspect]
     Indication: CROHN'S DISEASE
     Dosage: 100 MG
  3. INFLIXIMAB [Suspect]
     Indication: CROHN'S DISEASE

REACTIONS (2)
  - DRUG INEFFECTIVE [None]
  - SQUAMOUS CELL CARCINOMA OF SKIN [None]
